FAERS Safety Report 22073043 (Version 3)
Quarter: 2024Q3

REPORT INFORMATION
  Report Type: Spontaneous
  Country: US (occurrence: US)
  Receive Date: 20230308
  Receipt Date: 20240805
  Transmission Date: 20241016
  Serious: Yes (Other)
  Sender: AMGEN
  Company Number: US-AMGEN-USASP2023037365

PATIENT
  Age: 80 Year
  Sex: Female

DRUGS (1)
  1. KYPROLIS [Suspect]
     Active Substance: CARFILZOMIB
     Indication: Product used for unknown indication
     Dosage: 20 MILLIGRAM/SQ. METER
     Route: 065

REACTIONS (1)
  - Malignant neoplasm progression [Not Recovered/Not Resolved]
